FAERS Safety Report 18003781 (Version 2)
Quarter: 2020Q3

REPORT INFORMATION
  Report Type: Spontaneous
  Country: JP (occurrence: JP)
  Receive Date: 20200710
  Receipt Date: 20200731
  Transmission Date: 20201103
  Serious: Yes (Hospitalization, Other)
  Sender: FDA-Public Use
  Company Number: JP-009507513-2007JPN000286J

PATIENT
  Age: 55 Year
  Sex: Female

DRUGS (1)
  1. KEYTRUDA [Suspect]
     Active Substance: PEMBROLIZUMAB
     Indication: NON-SMALL CELL LUNG CANCER
     Dosage: 200 MILLIGRAM, Q3W
     Route: 041
     Dates: start: 2019

REACTIONS (4)
  - Acute kidney injury [Recovered/Resolved]
  - Small intestinal stenosis [Recovered/Resolved]
  - Pancreatitis acute [Recovered/Resolved]
  - Immune-mediated hypothyroidism [Not Recovered/Not Resolved]
